FAERS Safety Report 8358555-0 (Version None)
Quarter: 2012Q2

REPORT INFORMATION
  Report Type: 
  Country: None (occurrence: None)
  Receive Date: 20120514
  Receipt Date: 20120508
  Transmission Date: 20120825
  Serious: Yes (Hospitalization)
  Sender: FDA-Public Use
  Company Number: US-BAYER-2011-122899

PATIENT
  Age: 33 Year
  Sex: Female
  Weight: 68.027 kg

DRUGS (14)
  1. IBUPROFEN [Concomitant]
     Dosage: UNK UNK, PRN
     Dates: start: 20010101
  2. ATIVAN [Concomitant]
     Dosage: 1 MG, UNK
     Dates: start: 20030101
  3. FLOVENT [Concomitant]
  4. DROSPIRENONE AND ETHINYL ESTRADIOL [Suspect]
     Indication: OVARIAN CYST
  5. YAZ [Suspect]
     Indication: MENSTRUAL CYCLE MANAGEMENT
     Dosage: UNK
     Dates: start: 20050101, end: 20090101
  6. YAZ [Suspect]
     Indication: OVARIAN CYST
  7. DROSPIRENONE AND ETHINYL ESTRADIOL [Suspect]
     Indication: MENSTRUAL CYCLE MANAGEMENT
     Dosage: UNK
     Dates: start: 20050101, end: 20090101
  8. YASMIN [Suspect]
     Indication: OVARIAN CYST
  9. ALBUTEROL [Concomitant]
     Dosage: UNK UNK, PRN
     Dates: start: 20020101
  10. SINGULAIR [Concomitant]
  11. YASMIN [Suspect]
     Indication: MENSTRUAL CYCLE MANAGEMENT
     Dosage: UNK
     Dates: start: 20050101, end: 20090101
  12. PROMETHAZINE [Concomitant]
     Dosage: 25 MG, UNK
  13. CIPROFLOXACIN HCL [Concomitant]
     Dosage: 250 MG, UNK
  14. LIDOCAINE [Concomitant]

REACTIONS (4)
  - PAIN [None]
  - MENTAL DISORDER [None]
  - CHOLECYSTITIS [None]
  - GASTROINTESTINAL DISORDER [None]
